FAERS Safety Report 4765400-9 (Version None)
Quarter: 2005Q3

REPORT INFORMATION
  Report Type: 
  Country: None (occurrence: None)
  Receive Date: 20050907
  Receipt Date: 20050907
  Transmission Date: 20060218
  Serious: Yes (Hospitalization)
  Sender: FDA-Public Use
  Company Number: None

PATIENT
  Age: 75 Year
  Sex: Male

DRUGS (2)
  1. CAPOTEN [Suspect]
     Indication: RENAL FAILURE ACUTE
     Dosage: 25 MG BID PO
     Route: 048
  2. CAPOTEN [Suspect]
     Indication: RENAL FAILURE CHRONIC
     Dosage: 25 MG BID PO
     Route: 048

REACTIONS (7)
  - ATRIAL FIBRILLATION [None]
  - CARDIAC FAILURE CONGESTIVE [None]
  - DIABETES MELLITUS [None]
  - ISCHAEMIC CARDIOMYOPATHY [None]
  - MITRAL VALVE INCOMPETENCE [None]
  - RENAL FAILURE CHRONIC [None]
  - VENTRICULAR TACHYCARDIA [None]
